FAERS Safety Report 15784800 (Version 1)
Quarter: 2019Q1

REPORT INFORMATION
  Report Type: Report from Study
  Country: IN (occurrence: IN)
  Receive Date: 20190103
  Receipt Date: 20190103
  Transmission Date: 20190417
  Serious: Yes (Other)
  Sender: FDA-Public Use
  Company Number: IN-HETERO LABS LIMITED-HET2018IN01599

PATIENT
  Age: 22 Year
  Sex: Female

DRUGS (3)
  1. ESCITALOPRAM [Suspect]
     Active Substance: ESCITALOPRAM OXALATE
     Indication: DEPRESSION
     Dosage: 10 MG,  (0-0-1)
     Route: 048
  2. NEW LIVFIT [Concomitant]
     Indication: LIVER DISORDER
     Dosage: UNK
     Route: 065
  3. ATARAX [Concomitant]
     Active Substance: HYDROXYZINE HYDROCHLORIDE
     Indication: PRURITUS
     Dosage: UNK
     Route: 065
     Dates: start: 20180408

REACTIONS (2)
  - Hepatomegaly [Recovering/Resolving]
  - Typhoid fever [Recovering/Resolving]

NARRATIVE: CASE EVENT DATE: 2018
